FAERS Safety Report 22178069 (Version 2)
Quarter: 2023Q2

REPORT INFORMATION
  Report Type: Spontaneous
  Country: US (occurrence: US)
  Receive Date: 20230405
  Receipt Date: 20230522
  Transmission Date: 20230722
  Serious: Yes (Life-Threatening, Other)
  Sender: FDA-Public Use
  Company Number: US-PFIZER INC-202300141720

PATIENT
  Age: 73 Year
  Sex: Male
  Weight: 76.19 kg

DRUGS (2)
  1. PAXLOVID [Suspect]
     Active Substance: NIRMATRELVIR\RITONAVIR
     Indication: COVID-19 treatment
     Dosage: [PF-07321332 300 MG]/[RITONAVIR 100 MG]; 2X/DAY
     Route: 048
     Dates: start: 20230302, end: 20230306
  2. CETIRIZINE HYDROCHLORIDE [Concomitant]
     Active Substance: CETIRIZINE HYDROCHLORIDE
     Dosage: UNK (2 YEARS AGO)

REACTIONS (3)
  - Blood pressure increased [Recovered/Resolved]
  - Thunderclap headache [Recovered/Resolved]
  - Hypertensive crisis [Recovered/Resolved]

NARRATIVE: CASE EVENT DATE: 20230305
